FAERS Safety Report 16340759 (Version 1)
Quarter: 2019Q2

REPORT INFORMATION
  Report Type: Spontaneous
  Country: CH (occurrence: CH)
  Receive Date: 20190522
  Receipt Date: 20190522
  Transmission Date: 20190711
  Serious: Yes (Hospitalization)
  Sender: FDA-Public Use
  Company Number: CH-ROCHE-2319896

PATIENT
  Age: 36 Year
  Sex: Female

DRUGS (7)
  1. VALIUM [Suspect]
     Active Substance: DIAZEPAM
     Indication: MANIA
     Route: 048
     Dates: start: 20190501, end: 20190503
  2. ABILIFY [Suspect]
     Active Substance: ARIPIPRAZOLE
     Indication: MANIA
     Route: 048
     Dates: start: 20190415, end: 20190503
  3. STILNOX [Suspect]
     Active Substance: ZOLPIDEM TARTRATE
     Indication: MANIA
     Route: 048
     Dates: start: 20190501, end: 20190503
  4. DEPAKINE [VALPROIC ACID] [Suspect]
     Active Substance: VALPROIC ACID
     Indication: MANIA
     Route: 048
     Dates: start: 20190502, end: 20190503
  5. DEPAKINE [VALPROIC ACID] [Suspect]
     Active Substance: VALPROIC ACID
     Route: 048
     Dates: start: 20190503, end: 20190503
  6. TEMESTA [LORAZEPAM] [Concomitant]
     Active Substance: LORAZEPAM
     Route: 065
     Dates: end: 20190501
  7. IMOVANE [Concomitant]
     Active Substance: ZOPICLONE
     Route: 065
     Dates: end: 20190501

REACTIONS (5)
  - Dysarthria [Recovered/Resolved]
  - Product preparation error [Unknown]
  - Accidental overdose [Unknown]
  - Tachycardia [Unknown]
  - Sedation complication [Recovered/Resolved]

NARRATIVE: CASE EVENT DATE: 20190503
